FAERS Safety Report 9338903 (Version 1)
Quarter: 2013Q2

REPORT INFORMATION
  Report Type: Spontaneous
  Country: US (occurrence: None)
  Receive Date: 20130603
  Receipt Date: 20130603
  Transmission Date: 20140414
  Serious: Yes (Hospitalization)
  Sender: FDA-Public Use
  Company Number: 2013036171

PATIENT
  Age: 48 Year
  Sex: Male

DRUGS (1)
  1. PRIVIGEN (IMMUNE GLOBULIN INTRAVENOUS (HUMAN 10% LIQUID) [Suspect]
     Indication: TOXIC EPIDERMAL NECROLYSIS
     Dosage: 105  G TOTAL

REACTIONS (8)
  - Toxic epidermal necrolysis [None]
  - Haemolysis [None]
  - Pigment nephropathy [None]
  - Haemodialysis [None]
  - Blood lactate dehydrogenase increased [None]
  - Heparin-induced thrombocytopenia [None]
  - Disseminated intravascular coagulation [None]
  - Renal tubular necrosis [None]
